FAERS Safety Report 16849932 (Version 2)
Quarter: 2019Q3

REPORT INFORMATION
  Report Type: Report from Study
  Country: TR (occurrence: TR)
  Receive Date: 20190925
  Receipt Date: 20190926
  Transmission Date: 20191005
  Serious: Yes (Death)
  Sender: FDA-Public Use
  Company Number: TR-TAKEDA-2019TUS053745

PATIENT
  Age: 73 Year
  Sex: Female

DRUGS (2)
  1. DECADRON [Concomitant]
     Active Substance: DEXAMETHASONE
     Indication: PLASMA CELL MYELOMA
     Dosage: 20 MILLIGRAM, 1/WEEK
     Route: 042
     Dates: start: 20181213, end: 20190626
  2. BORTEZOMIB. [Suspect]
     Active Substance: BORTEZOMIB
     Indication: PLASMA CELL MYELOMA
     Dosage: 2 MILLIGRAM, 1/WEEK
     Route: 042
     Dates: start: 20181213, end: 20190726

REACTIONS (1)
  - Death [Fatal]

NARRATIVE: CASE EVENT DATE: 20190827
